FAERS Safety Report 19759019 (Version 1)
Quarter: 2021Q3

REPORT INFORMATION
  Report Type: Spontaneous
  Country: DE (occurrence: DE)
  Receive Date: 20210827
  Receipt Date: 20210827
  Transmission Date: 20211014
  Serious: Yes (Death, Hospitalization, Other)
  Sender: FDA-Public Use
  Company Number: DE-GLAXOSMITHKLINE-DE2021EME178128

PATIENT
  Age: 69 Year
  Sex: Female

DRUGS (1)
  1. JEMPERLI [Suspect]
     Active Substance: DOSTARLIMAB-GXLY
     Indication: PRODUCT USED FOR UNKNOWN INDICATION
     Dosage: UNK

REACTIONS (12)
  - Myocarditis [Unknown]
  - Myocardial fibrosis [Unknown]
  - Ventricular extrasystoles [Unknown]
  - Myocardial necrosis marker increased [Unknown]
  - Ventricular tachycardia [Unknown]
  - Right ventricular dysfunction [Unknown]
  - Acute myocardial infarction [Unknown]
  - Death [Fatal]
  - Cardiac disorder [Unknown]
  - Chest pain [Unknown]
  - Dyspnoea [Unknown]
  - Cardiogenic shock [Unknown]

NARRATIVE: CASE EVENT DATE: 20210816
